FAERS Safety Report 10481150 (Version 1)
Quarter: 2014Q3

REPORT INFORMATION
  Report Type: Spontaneous
  Country: US (occurrence: None)
  Receive Date: 20140908
  Receipt Date: 20140908
  Transmission Date: 20150326
  Serious: Yes (Hospitalization)
  Sender: FDA-Public Use
  Company Number: 389201

PATIENT
  Age: 68 Year
  Sex: Female
  Weight: 90.7 kg

DRUGS (7)
  1. VICTOZA [Suspect]
     Active Substance: LIRAGLUTIDE
     Indication: TYPE 2 DIABETES MELLITUS
     Route: 058
     Dates: start: 201302, end: 201305
  2. ANTIHYPERTENSIVES [Concomitant]
     Active Substance: UNSPECIFIED INGREDIENT
  3. LASIX /00032501/  (FUROSEMIDE) [Concomitant]
  4. LEVEMIR [Concomitant]
     Active Substance: INSULIN DETEMIR
  5. VITAMINS /00067501/  (ASCORBIC ACID, ERGOCALCIFEROL, NICOTINAMIDE, RETINOL, RIBOFLAVIN, THIAMINE HYDROCHLORIDE) [Concomitant]
  6. NOVOLOG [Concomitant]
     Active Substance: INSULIN ASPART
  7. WELLBUTRIN [Concomitant]
     Active Substance: BUPROPION HYDROCHLORIDE

REACTIONS (2)
  - Abdominal discomfort [None]
  - Pancreatitis acute [None]

NARRATIVE: CASE EVENT DATE: 201306
